FAERS Safety Report 4956208-X (Version None)
Quarter: 2006Q1

REPORT INFORMATION
  Report Type: 
  Country: None (occurrence: None)
  Receive Date: 20060329
  Receipt Date: 20060317
  Transmission Date: 20060701
  Serious: Yes (Other)
  Sender: FDA-Public Use
  Company Number: US-JNJFOC-20060305568

PATIENT
  Sex: Male

DRUGS (2)
  1. BLINDED; INFLIXIMAB, RECOMBINANT [Suspect]
     Route: 042
  2. PLACEBO [Suspect]
     Route: 042

REACTIONS (1)
  - LUNG NEOPLASM [None]
